FAERS Safety Report 15630274 (Version 1)
Quarter: 2018Q4

REPORT INFORMATION
  Report Type: Spontaneous
  Country: US (occurrence: US)
  Receive Date: 20181117
  Receipt Date: 20181117
  Transmission Date: 20190205
  Serious: No
  Sender: FDA-Public Use
  Company Number: None

PATIENT
  Age: 70 Year
  Sex: Female
  Weight: 71.1 kg

DRUGS (2)
  1. LOSARTAN. [Suspect]
     Active Substance: LOSARTAN
     Indication: HYPERTENSION
     Route: 048
  2. MULTIVITAMIN [Concomitant]
     Active Substance: VITAMINS

REACTIONS (7)
  - Cellulitis [None]
  - Pruritus [None]
  - Carpal tunnel syndrome [None]
  - Nightmare [None]
  - Bone pain [None]
  - Sleep terror [None]
  - Pain in extremity [None]

NARRATIVE: CASE EVENT DATE: 20181110
